FAERS Safety Report 21184568 (Version 2)
Quarter: 2022Q3

REPORT INFORMATION
  Report Type: Report from Study
  Country: AU (occurrence: AU)
  Receive Date: 20220808
  Receipt Date: 20220812
  Transmission Date: 20221027
  Serious: Yes (Hospitalization, Other)
  Sender: FDA-Public Use
  Company Number: AU-ARGENX-2022-ARGX-AU001407

PATIENT

DRUGS (23)
  1. EFGARTIGIMOD ALFA [Suspect]
     Active Substance: EFGARTIGIMOD ALFA
     Indication: Immune thrombocytopenia
     Dosage: 1000 MG, 1/WEEK
     Route: 058
     Dates: start: 20210913
  2. EFGARTIGIMOD ALFA [Suspect]
     Active Substance: EFGARTIGIMOD ALFA
     Dosage: 1000 MG, 1/WEEK
     Route: 058
     Dates: start: 20220725
  3. HYALURONIDASE (HUMAN RECOMBINANT) [Suspect]
     Active Substance: HYALURONIDASE (HUMAN RECOMBINANT)
     Indication: Immune thrombocytopenia
     Dosage: 1000 MG, 1/WEEK
     Route: 058
     Dates: start: 20210913
  4. HYALURONIDASE (HUMAN RECOMBINANT) [Suspect]
     Active Substance: HYALURONIDASE (HUMAN RECOMBINANT)
     Dosage: 1000 MG, 1/WEEK
     Route: 058
     Dates: start: 20220725
  5. TELMISARTAN [Concomitant]
     Active Substance: TELMISARTAN
     Indication: Hypertension
     Dosage: 40 MG, DAILY
     Route: 048
     Dates: start: 1992
  6. ATORVASTATIN [Concomitant]
     Active Substance: ATORVASTATIN
     Indication: Hypercholesterolaemia
     Dosage: 20 MG, DAILY
     Route: 048
     Dates: start: 2012
  7. ATORVASTATIN [Concomitant]
     Active Substance: ATORVASTATIN
     Indication: Hypertension
  8. MOVICOL [Concomitant]
     Active Substance: POLYETHYLENE GLYCOL 3350\POTASSIUM CHLORIDE\SODIUM BICARBONATE\SODIUM CHLORIDE
     Indication: Constipation
     Dosage: UNK, PRN (1-2 SACHET)
     Route: 048
     Dates: start: 20200120
  9. METAMUCIL [Concomitant]
     Active Substance: PLANTAGO SEED
     Indication: Constipation
     Dosage: UNK, PRN (4 TSP)
     Route: 048
     Dates: start: 1991
  10. ACTICOAT FLEX 3 [Concomitant]
     Indication: Skin ulcer
     Dosage: 1 DF Q3D
     Route: 061
     Dates: start: 20210607
  11. ZINC CREAM [Concomitant]
     Indication: Skin ulcer
     Dosage: 1 DF Q3D
     Route: 061
     Dates: start: 20210607
  12. CLOTRIMAZOLE\HYDROCORTISONE [Concomitant]
     Active Substance: CLOTRIMAZOLE\HYDROCORTISONE
     Indication: Skin ulcer
     Dosage: UNK UNK, PRN (1% W/W)
     Route: 061
     Dates: start: 20220513
  13. METOPROLOL [Concomitant]
     Active Substance: METOPROLOL
     Indication: Atrial fibrillation
     Dosage: 25 MG, BID
     Route: 048
     Dates: start: 20220528, end: 20220529
  14. METOPROLOL [Concomitant]
     Active Substance: METOPROLOL
     Dosage: 37.5 MG, BID
     Route: 048
     Dates: start: 20220529, end: 20220606
  15. METOPROLOL [Concomitant]
     Active Substance: METOPROLOL
     Dosage: 25 MG, BID
     Route: 048
     Dates: start: 20220606
  16. PANTOPRAZOLE [Concomitant]
     Active Substance: PANTOPRAZOLE
     Indication: Gastrooesophageal reflux disease
     Dosage: 40 MG, DAILY
     Route: 048
     Dates: start: 20220531
  17. PHOSPHATE PHEBRA [Concomitant]
     Indication: Hypophosphataemia
     Dosage: 1 DF, TID
     Route: 048
     Dates: start: 20220628
  18. POTASSIUM CHLORIDE [Concomitant]
     Active Substance: POTASSIUM CHLORIDE
     Indication: Hypokalaemia
     Dosage: 2 DF, BID
     Route: 048
     Dates: start: 20220628
  19. FUROSEMIDE [Concomitant]
     Active Substance: FUROSEMIDE
     Indication: Cellulitis
     Dosage: 40 MG, DAILY
     Route: 048
     Dates: start: 20220701
  20. FUROSEMIDE [Concomitant]
     Active Substance: FUROSEMIDE
     Indication: Oedema
  21. MAGNESIUM ASPARTATE [Concomitant]
     Active Substance: MAGNESIUM ASPARTATE
     Indication: Magnesium deficiency
     Dosage: 1 G, DAILY
     Route: 048
     Dates: start: 20220701
  22. FEXOFENADINE HYDROCHLORIDE [Concomitant]
     Active Substance: FEXOFENADINE HYDROCHLORIDE
     Indication: Pruritus
     Dosage: 108 MG, DAILY
     Route: 048
     Dates: start: 20220108, end: 20220122
  23. FEXOFENADINE HYDROCHLORIDE [Concomitant]
     Active Substance: FEXOFENADINE HYDROCHLORIDE
     Dosage: 180 MG, PRN
     Route: 048
     Dates: start: 20220123

REACTIONS (2)
  - Oesophageal adenocarcinoma [Recovering/Resolving]
  - Bacterial sepsis [Recovering/Resolving]

NARRATIVE: CASE EVENT DATE: 20220802
